FAERS Safety Report 15609774 (Version 1)
Quarter: 2018Q4

REPORT INFORMATION
  Report Type: Spontaneous
  Country: CA (occurrence: CA)
  Receive Date: 20181113
  Receipt Date: 20181113
  Transmission Date: 20190205
  Serious: Yes (Disabling)
  Sender: FDA-Public Use
  Company Number: CA-AMGEN-CANSP2018158204

PATIENT
  Sex: Male

DRUGS (13)
  1. CARDIZEM [Concomitant]
     Active Substance: DILTIAZEM HYDROCHLORIDE
  2. VITAMIN D [Concomitant]
     Active Substance: CHOLECALCIFEROL
  3. SEMPERA [Concomitant]
     Active Substance: ITRACONAZOLE
  4. METOPROLOL. [Concomitant]
     Active Substance: METOPROLOL
  5. CRESTOR [Concomitant]
     Active Substance: ROSUVASTATIN CALCIUM
  6. TAMSULOSIN HYDROCHLORIDE. [Concomitant]
     Active Substance: TAMSULOSIN HYDROCHLORIDE
  7. REPATHA [Suspect]
     Active Substance: EVOLOCUMAB
     Indication: HYPERLIPIDAEMIA
     Dosage: 140 MG, UNK
     Route: 058
  8. LIPITOR [Suspect]
     Active Substance: ATORVASTATIN CALCIUM
     Indication: PRODUCT USED FOR UNKNOWN INDICATION
     Dosage: 40 MG, UNK
     Route: 065
  9. EZETROL [Suspect]
     Active Substance: EZETIMIBE
     Indication: PRODUCT USED FOR UNKNOWN INDICATION
     Route: 048
  10. BRILINTA [Concomitant]
     Active Substance: TICAGRELOR
  11. RIVASA [Concomitant]
     Active Substance: ASPIRIN
  12. DILTIAZEM. [Concomitant]
     Active Substance: DILTIAZEM
  13. TECFIDERA [Concomitant]
     Active Substance: DIMETHYL FUMARATE

REACTIONS (4)
  - Low density lipoprotein increased [Recovered/Resolved]
  - Muscle disorder [Recovered/Resolved]
  - Intentional product misuse [Recovered/Resolved]
  - Gait inability [Recovered/Resolved]
